FAERS Safety Report 8248873-9 (Version None)
Quarter: 2012Q2

REPORT INFORMATION
  Report Type: 
  Country: None (occurrence: None)
  Receive Date: 20120401
  Receipt Date: 20120320
  Transmission Date: 20120825
  Serious: Yes (Congenital Anomaly)
  Sender: FDA-Public Use
  Company Number: US-ELI_LILLY_AND_COMPANY-US201112000268

PATIENT

DRUGS (4)
  1. SEROQUEL [Concomitant]
     Dosage: 200 DF, UNKNOWN
     Route: 064
     Dates: end: 20110217
  2. CYMBALTA [Suspect]
     Dosage: 60 MG, QD
     Route: 064
     Dates: end: 20110217
  3. CYMBALTA [Suspect]
     Indication: DEPRESSION
     Dosage: 60 MG, QD
     Route: 064
     Dates: end: 20110217
  4. SEROQUEL [Concomitant]
     Dosage: 200 DF, UNKNOWN
     Route: 064
     Dates: end: 20110217

REACTIONS (4)
  - PREMATURE BABY [None]
  - VENTRICULAR SEPTAL DEFECT [None]
  - FOETAL EXPOSURE DURING PREGNANCY [None]
  - BREECH DELIVERY [None]
